FAERS Safety Report 17571946 (Version 1)
Quarter: 2020Q1

REPORT INFORMATION
  Report Type: Spontaneous
  Country: US (occurrence: US)
  Receive Date: 20200321
  Receipt Date: 20200321
  Transmission Date: 20200409
  Serious: Yes (Hospitalization)
  Sender: FDA-Public Use
  Company Number: None

PATIENT
  Age: 15 Year
  Sex: Male

DRUGS (7)
  1. SYMBICORT [Concomitant]
     Active Substance: BUDESONIDE\FORMOTEROL FUMARATE DIHYDRATE
  2. OXYCODONE [Concomitant]
     Active Substance: OXYCODONE
  3. JADENU [Suspect]
     Active Substance: DEFERASIROX
     Indication: SICKLE CELL DISEASE
     Route: 048
     Dates: start: 20190320
  4. HYDROXYUREA. [Concomitant]
     Active Substance: HYDROXYUREA
  5. APIRIN LOW [Concomitant]
  6. EXJADE [Concomitant]
     Active Substance: DEFERASIROX
  7. TYLENOL [Concomitant]
     Active Substance: ACETAMINOPHEN

REACTIONS (2)
  - Therapeutic procedure [None]
  - Therapy cessation [None]

NARRATIVE: CASE EVENT DATE: 20200306
